FAERS Safety Report 19977549 (Version 1)
Quarter: 2021Q4

REPORT INFORMATION
  Report Type: Spontaneous
  Country: US (occurrence: US)
  Receive Date: 20211021
  Receipt Date: 20211021
  Transmission Date: 20220303
  Serious: Yes (Other)
  Sender: FDA-Public Use
  Company Number: US-NOVOPROD-857303

PATIENT
  Sex: Female

DRUGS (1)
  1. LEVEMIR [Suspect]
     Active Substance: INSULIN DETEMIR
     Indication: Diabetes mellitus
     Dosage: 15 IU, QD (ONCE A NIGHT)
     Route: 058
     Dates: start: 2016

REACTIONS (2)
  - Fracture infection [Unknown]
  - Hand fracture [Unknown]

NARRATIVE: CASE EVENT DATE: 20190101
